FAERS Safety Report 5287899-4 (Version None)
Quarter: 2007Q2

REPORT INFORMATION
  Report Type: 
  Country: None (occurrence: None)
  Receive Date: 20070405
  Receipt Date: 20070325
  Transmission Date: 20071010
  Serious: Yes (Other)
  Sender: FDA-Public Use
  Company Number: AE-JNJFOC-20070306214

PATIENT
  Sex: Male
  Weight: 65 kg

DRUGS (3)
  1. REMICADE [Suspect]
     Route: 042
  2. REMICADE [Suspect]
     Route: 042
  3. REMICADE [Suspect]
     Indication: PSORIASIS
     Dosage: 5 MG/KG (325 MG) INITIATED 27-JUN-2006 AND GIVEN AT WEEK 0, 2, 6
     Route: 042

REACTIONS (1)
  - RASH PUSTULAR [None]
